FAERS Safety Report 4428885-3 (Version None)
Quarter: 2004Q3

REPORT INFORMATION
  Report Type: 
  Country: None (occurrence: None)
  Receive Date: 20040817
  Receipt Date: 20040803
  Transmission Date: 20050211
  Serious: Yes (Hospitalization, Other)
  Sender: FDA-Public Use
  Company Number: 04-00460

PATIENT
  Age: 77 Year
  Sex: Female

DRUGS (4)
  1. IPRATROPIUM BROMIDE [Suspect]
  2. ALBUTEROL [Suspect]
  3. METHYLPREDNISOLONE [Concomitant]
  4. HYDROCHLOROTHIAZIDE [Concomitant]

REACTIONS (18)
  - ASTHMA [None]
  - BLOOD POTASSIUM DECREASED [None]
  - BLOOD SODIUM DECREASED [None]
  - CARDIAC ASTHMA [None]
  - CARDIAC MURMUR [None]
  - CARDIAC VENTRICULAR DISORDER [None]
  - COMA [None]
  - CONDITION AGGRAVATED [None]
  - ECHOCARDIOGRAM ABNORMAL [None]
  - FIBRIN D DIMER INCREASED [None]
  - HEART RATE INCREASED [None]
  - HEART RATE IRREGULAR [None]
  - HYPOTENSION [None]
  - HYPOTHERMIA [None]
  - HYPOVOLAEMIA [None]
  - PERIPHERAL COLDNESS [None]
  - PULSE ABNORMAL [None]
  - VENTRICULAR HYPERTROPHY [None]
